FAERS Safety Report 4941889-7 (Version None)
Quarter: 2006Q1

REPORT INFORMATION
  Report Type: 
  Country: None (occurrence: None)
  Receive Date: 20060307
  Receipt Date: 20060220
  Transmission Date: 20060701
  Serious: Yes (Death, Other)
  Sender: FDA-Public Use
  Company Number: 2006AL000498

PATIENT
  Age: 26 Year
  Sex: Male
  Weight: 83.0083 kg

DRUGS (4)
  1. TRAZODONE HCL [Suspect]
     Dosage: 100 MG
  2. LOPERAMIDE [Suspect]
     Dosage: PO
     Route: 048
  3. LITHIUM [Concomitant]
  4. ARIPIPRAZOLE [Concomitant]

REACTIONS (10)
  - ALCOHOL POISONING [None]
  - EXCORIATION [None]
  - GRANULOMA [None]
  - HEPATITIS [None]
  - INFLAMMATION [None]
  - INSOMNIA [None]
  - OESOPHAGITIS [None]
  - OVERDOSE [None]
  - SPLEEN DISORDER [None]
  - VENTRICULAR HYPERTROPHY [None]
